FAERS Safety Report 21544225 (Version 1)
Quarter: 2022Q4

REPORT INFORMATION
  Report Type: Report from Study
  Country: US (occurrence: US)
  Receive Date: 20221102
  Receipt Date: 20221102
  Transmission Date: 20230112
  Serious: No
  Sender: FDA-Public Use
  Company Number: US-ABBVIE-4151638

PATIENT
  Age: 18 Year
  Sex: Female

DRUGS (1)
  1. HUMIRA [Suspect]
     Active Substance: ADALIMUMAB
     Indication: Crohn^s disease
     Dosage: FORM STRENGTH: 40 MG?CF
     Route: 058

REACTIONS (3)
  - Injection site rash [Recovering/Resolving]
  - Throat irritation [Unknown]
  - Oropharyngeal discomfort [Unknown]

NARRATIVE: CASE EVENT DATE: 20220921
